FAERS Safety Report 11876697 (Version 1)
Quarter: 2015Q4

REPORT INFORMATION
  Report Type: Spontaneous
  Country: None (occurrence: None)
  Receive Date: 20151229
  Receipt Date: 20151229
  Transmission Date: 20160305
  Serious: Yes (Other)
  Sender: FDA-Public Use
  Company Number: BAUSCH-BL-2015-030763

PATIENT
  Age: 2 Month
  Sex: Male
  Weight: 2 kg

DRUGS (3)
  1. SEVOFLURANE. [Concomitant]
     Active Substance: SEVOFLURANE
     Indication: INDUCTION OF ANAESTHESIA
     Dosage: 6 VOL PERCENT
  2. TROPICAMIDE. [Concomitant]
     Active Substance: TROPICAMIDE
     Indication: PREOPERATIVE CARE
     Dosage: AT 5 MINUTES INTERVAL
     Route: 047
  3. PHENYLEPHRINE [Suspect]
     Active Substance: PHENYLEPHRINE\PHENYLEPHRINE HYDROCHLORIDE
     Indication: PREOPERATIVE CARE
     Dosage: INSTILLED IN EACH EYE TWICE AT 5 MIN INTERVALS
     Route: 047

REACTIONS (3)
  - Angioedema [Unknown]
  - Bronchospasm [Unknown]
  - Hypotension [Unknown]
